FAERS Safety Report 5950349-6 (Version None)
Quarter: 2008Q4

REPORT INFORMATION
  Report Type: 
  Country: None (occurrence: None)
  Receive Date: 20081112
  Receipt Date: 20081104
  Transmission Date: 20090506
  Serious: Yes (Hospitalization)
  Sender: FDA-Public Use
  Company Number: PHHY2008DE25397

PATIENT
  Sex: Female

DRUGS (2)
  1. PROVAS [Suspect]
  2. DIOVAN [Suspect]
     Dosage: 80 MG

REACTIONS (5)
  - BLOOD PRESSURE INADEQUATELY CONTROLLED [None]
  - DERMATITIS ALLERGIC [None]
  - ECZEMA [None]
  - MALAISE [None]
  - RASH [None]
